FAERS Safety Report 21144748 (Version 1)
Quarter: 2022Q3

REPORT INFORMATION
  Report Type: Spontaneous
  Country: US (occurrence: None)
  Receive Date: 20220728
  Receipt Date: 20220728
  Transmission Date: 20221026
  Serious: No
  Sender: FDA-Public Use
  Company Number: US-ROCHE-2957577

PATIENT
  Sex: Female

DRUGS (3)
  1. PERJETA [Suspect]
     Active Substance: PERTUZUMAB
     Indication: Breast cancer
     Dosage: ONGOING YES
     Route: 065
  2. HERCEPTIN [Suspect]
     Active Substance: TRASTUZUMAB
     Indication: Breast cancer
     Dosage: ONGOING YES
     Route: 065
  3. KANJINTI [Concomitant]
     Active Substance: TRASTUZUMAB-ANNS

REACTIONS (2)
  - Rash [Unknown]
  - Off label use [Unknown]
